FAERS Safety Report 23193051 (Version 1)
Quarter: 2023Q4

REPORT INFORMATION
  Report Type: Spontaneous
  Country: GB (occurrence: GB)
  Receive Date: 20231116
  Receipt Date: 20231116
  Transmission Date: 20240110
  Serious: Yes (Life-Threatening, Other)
  Sender: FDA-Public Use
  Company Number: GB-PFIZER INC-PV202300183350

PATIENT
  Age: 33 Year
  Sex: Female

DRUGS (3)
  1. LIDOCAINE HYDROCHLORIDE [Suspect]
     Active Substance: DEXTROSE MONOHYDRATE\EPINEPHRINE\EPINEPHRINE BITARTRATE\LIDOCAINE\LIDOCAINE HYDROCHLORIDE\LIDOCAINE
     Dosage: 10 ML, 2% (TOTAL OF 20 ML) OVER 5 MINUTES
  2. BUPIVACAINE [Suspect]
     Active Substance: BUPIVACAINE
     Dosage: 15 ML, 0.1%
     Route: 042
  3. LEVOBUPIVACAINE [Suspect]
     Active Substance: LEVOBUPIVACAINE
     Dosage: 10 ML, 0.5%

REACTIONS (1)
  - Anaesthetic complication [Unknown]
